FAERS Safety Report 25933746 (Version 1)
Quarter: 2025Q4

REPORT INFORMATION
  Report Type: Spontaneous
  Country: EU (occurrence: EU)
  Receive Date: 20251017
  Receipt Date: 20251017
  Transmission Date: 20260117
  Serious: Yes (Death, Hospitalization, Other)
  Sender: AMGEN
  Company Number: EU-AMGEN-NORSP2025203379

PATIENT

DRUGS (1)
  1. ETANERCEPT [Suspect]
     Active Substance: ETANERCEPT
     Indication: Rheumatoid arthritis
     Dosage: UNK
     Route: 065

REACTIONS (19)
  - Lung adenocarcinoma [Fatal]
  - Sudden death [Fatal]
  - Death [Fatal]
  - Traumatic fracture [Unknown]
  - Toe amputation [Unknown]
  - Post procedural infection [Unknown]
  - Acute kidney injury [Unknown]
  - Fall [Unknown]
  - Infection [Unknown]
  - Atrioventricular block complete [Unknown]
  - Rheumatoid vasculitis [Unknown]
  - Bladder cancer [Unknown]
  - Hysterectomy [Unknown]
  - Keratitis [Unknown]
  - Road traffic accident [Unknown]
  - Breast cancer [Unknown]
  - Acute myocardial infarction [Unknown]
  - Rheumatoid arthritis [Unknown]
  - Adverse event [Unknown]
